FAERS Safety Report 20653353 (Version 1)
Quarter: 2022Q1

REPORT INFORMATION
  Report Type: Spontaneous
  Country: US (occurrence: None)
  Receive Date: 20220329
  Receipt Date: 20220329
  Transmission Date: 20220423
  Serious: No
  Sender: FDA-Public Use
  Company Number: None

PATIENT
  Age: 69 Year
  Sex: Female

DRUGS (1)
  1. GLATIRAMER ACETATE [Suspect]
     Active Substance: GLATIRAMER ACETATE
     Route: 058
     Dates: start: 201510, end: 202203

REACTIONS (4)
  - Pruritus [None]
  - Urticaria [None]
  - Dizziness [None]
  - Tremor [None]

NARRATIVE: CASE EVENT DATE: 20220308
